FAERS Safety Report 18487386 (Version 5)
Quarter: 2022Q1

REPORT INFORMATION
  Report Type: Spontaneous
  Country: JP (occurrence: JP)
  Receive Date: 20201111
  Receipt Date: 20220308
  Transmission Date: 20220423
  Serious: Yes (Hospitalization, Other)
  Sender: FDA-Public Use
  Company Number: JP-BRISTOL-MYERS SQUIBB COMPANY-BMS-2020-092390

PATIENT
  Age: 46 Year
  Sex: Female
  Weight: 56.8 kg

DRUGS (20)
  1. YERVOY [Suspect]
     Active Substance: IPILIMUMAB
     Indication: Metastatic renal cell carcinoma
     Dosage: 56.3 MG, Q3W, ONE TIME DOSE
     Route: 041
     Dates: start: 20200806, end: 20200806
  2. YERVOY [Suspect]
     Active Substance: IPILIMUMAB
     Dosage: 56.3 MILLIGRAM, ONE TIME DOSE
     Route: 041
     Dates: start: 20200827, end: 20200827
  3. OPDIVO [Suspect]
     Active Substance: NIVOLUMAB
     Indication: Metastatic renal cell carcinoma
     Dosage: 200 MILLIGRAM,Q3W ONE TIME DOSE
     Route: 041
     Dates: start: 20200806, end: 20200806
  4. OPDIVO [Suspect]
     Active Substance: NIVOLUMAB
     Dosage: 200 MILLIGRAM, ONE TIME DOSE
     Route: 041
     Dates: start: 20200827, end: 20200827
  5. DECADRON (DEXAMETHASONE SODIUM PHOSPHATE) [Suspect]
     Active Substance: DEXAMETHASONE SODIUM PHOSPHATE
     Indication: Brain oedema
     Dosage: 8 MILLIGRAM, QD
     Route: 048
     Dates: start: 20200727, end: 20200729
  6. DECADRON (DEXAMETHASONE SODIUM PHOSPHATE) [Suspect]
     Active Substance: DEXAMETHASONE SODIUM PHOSPHATE
     Dosage: 4 MILLIGRAM, QD
     Route: 048
     Dates: start: 20200730, end: 20200801
  7. DECADRON (DEXAMETHASONE SODIUM PHOSPHATE) [Suspect]
     Active Substance: DEXAMETHASONE SODIUM PHOSPHATE
     Dosage: 2 MILLIGRAM, QD
     Route: 048
     Dates: start: 20200802
  8. DECADRON (DEXAMETHASONE SODIUM PHOSPHATE) [Suspect]
     Active Substance: DEXAMETHASONE SODIUM PHOSPHATE
     Dosage: 2 MILLIGRAM, QD
     Route: 048
     Dates: start: 20201004
  9. GANCICLOVIR SODIUM [Suspect]
     Active Substance: GANCICLOVIR SODIUM
     Indication: Cytomegalovirus test positive
     Dosage: 300 MILLIGRAM, Q12H
     Route: 065
     Dates: start: 20201005, end: 20201015
  10. PREDNISOLONE ACETATE [Suspect]
     Active Substance: PREDNISOLONE ACETATE
     Indication: Drug-induced liver injury
     Dosage: 80 MILLIGRAM, QD
     Route: 048
     Dates: start: 20200911, end: 20200917
  11. PREDNISOLONE ACETATE [Suspect]
     Active Substance: PREDNISOLONE ACETATE
     Dosage: 70 MILLIGRAM, QD
     Route: 048
     Dates: start: 20200918
  12. PREDNISOLONE ACETATE [Suspect]
     Active Substance: PREDNISOLONE ACETATE
     Dosage: 60 MILLIGRAM, QD
     Route: 048
     Dates: start: 20201004, end: 20201006
  13. PREDNISOLONE ACETATE [Suspect]
     Active Substance: PREDNISOLONE ACETATE
     Dosage: 50 MILLIGRAM, QD
     Route: 048
     Dates: start: 20201007, end: 20201009
  14. PREDNISOLONE ACETATE [Suspect]
     Active Substance: PREDNISOLONE ACETATE
     Dosage: 40 MILLIGRAM, QD
     Route: 048
     Dates: start: 20201010, end: 20201012
  15. PREDNISOLONE ACETATE [Suspect]
     Active Substance: PREDNISOLONE ACETATE
     Dosage: 35 MILLIGRAM, QD
     Route: 048
     Dates: start: 20201013, end: 20201015
  16. PREDNISOLONE ACETATE [Suspect]
     Active Substance: PREDNISOLONE ACETATE
     Dosage: 30 MILLIGRAM, QD
     Route: 048
     Dates: start: 20201016
  17. LANSOPRAZOLE [Concomitant]
     Active Substance: LANSOPRAZOLE
     Indication: Dyspepsia
     Dosage: UNK
     Route: 048
     Dates: start: 20200727
  18. LOXOPROFEN SODIUM [Concomitant]
     Active Substance: LOXOPROFEN SODIUM
     Indication: Product used for unknown indication
     Dosage: UNK
     Route: 048
     Dates: end: 20200807
  19. REBAMIPIDE [Concomitant]
     Active Substance: REBAMIPIDE
     Indication: Product used for unknown indication
     Dosage: UNK
     Route: 048
     Dates: end: 20200807
  20. ZOLPIDEM TARTRATE [Concomitant]
     Active Substance: ZOLPIDEM TARTRATE
     Indication: Product used for unknown indication
     Dosage: UNK
     Route: 048
     Dates: start: 20200809

REACTIONS (8)
  - Drug-induced liver injury [Not Recovered/Not Resolved]
  - Platelet count decreased [Recovering/Resolving]
  - Cytomegalovirus test positive [Recovered/Resolved]
  - Depressed level of consciousness [Unknown]
  - Malignant neoplasm progression [Unknown]
  - Diarrhoea [Recovered/Resolved]
  - Headache [Recovering/Resolving]
  - Cystitis [Recovering/Resolving]

NARRATIVE: CASE EVENT DATE: 20200807
